FAERS Safety Report 9631483 (Version 3)
Quarter: 2014Q1

REPORT INFORMATION
  Report Type: Spontaneous
  Country: US (occurrence: US)
  Receive Date: 20131018
  Receipt Date: 20140102
  Transmission Date: 20141002
  Serious: No
  Sender: FDA-Public Use
  Company Number: US-PFIZER INC-2013295385

PATIENT
  Age: 67 Year
  Sex: Female
  Weight: 104.31 kg

DRUGS (6)
  1. LYRICA [Suspect]
     Indication: FIBROMYALGIA
     Dosage: 150 MG, 2X/DAY
     Dates: end: 201310
  2. PREMARIN [Suspect]
     Dosage: UNK
  3. HYDROCODONE W/ACETAMINOPHEN [Concomitant]
     Indication: PAIN
     Dosage: 10/500MG, THREE TO FOUR TIMES A DAY
  4. ZEMPLAR [Concomitant]
     Dosage: 1 MG, DAILY
  5. KLOR-CON [Concomitant]
     Dosage: 10 MG, 2X/DAY
  6. FUROSEMIDE [Concomitant]
     Dosage: 80 MG, 2X/DAY

REACTIONS (5)
  - Malaise [Unknown]
  - Formication [Unknown]
  - Pain [Unknown]
  - Asthenia [Unknown]
  - Nausea [Unknown]
